FAERS Safety Report 9728284 (Version 1)
Quarter: 2013Q4

REPORT INFORMATION
  Report Type: Spontaneous
  Country: US (occurrence: US)
  Receive Date: 20131204
  Receipt Date: 20131204
  Transmission Date: 20140711
  Serious: Yes (Other)
  Sender: FDA-Public Use
  Company Number: US-SA-2013SA125635

PATIENT
  Age: 76 Year
  Sex: Female

DRUGS (3)
  1. LANTUS [Suspect]
     Route: 065
  2. LANTUS SOLOSTAR [Suspect]
     Indication: TYPE 2 DIABETES MELLITUS
     Dosage: DOSE:30 UNIT(S)
     Route: 051
  3. SOLOSTAR [Concomitant]
     Indication: TYPE 2 DIABETES MELLITUS

REACTIONS (1)
  - Blindness [Unknown]
